FAERS Safety Report 7005663-2 (Version None)
Quarter: 2010Q3

REPORT INFORMATION
  Report Type: 
  Country: None (occurrence: None)
  Receive Date: 20100921
  Receipt Date: 20100913
  Transmission Date: 20110219
  Serious: No
  Sender: FDA-Public Use
  Company Number: B0673050A

PATIENT
  Sex: Male

DRUGS (2)
  1. CLAVAMOX [Suspect]
     Dosage: 1.515G PER DAY
     Route: 048
     Dates: start: 20100827, end: 20100830
  2. LANSOPRAZOLE [Suspect]
     Indication: PRODUCT USED FOR UNKNOWN INDICATION
     Dosage: 15MG PER DAY
     Route: 065
     Dates: start: 20100810

REACTIONS (1)
  - HEPATIC FUNCTION ABNORMAL [None]
